FAERS Safety Report 9125078 (Version 2)
Quarter: 2013Q2

REPORT INFORMATION
  Report Type: Report from Study
  Country: US (occurrence: US)
  Receive Date: 20130227
  Receipt Date: 20130502
  Transmission Date: 20140414
  Serious: Yes (Hospitalization, Disabling, Congenital Anomaly)
  Sender: FDA-Public Use
  Company Number: US-GILEAD-2013-0070100

PATIENT
  Age: 46 Year
  Sex: Female

DRUGS (6)
  1. LETAIRIS [Suspect]
     Indication: PULMONARY ARTERIAL HYPERTENSION
     Dosage: 10 MG, UNK
     Route: 048
     Dates: start: 20110607
  2. TREPROSTINIL [Suspect]
     Indication: PULMONARY ARTERIAL HYPERTENSION
     Dosage: 5 MG, BID
     Route: 048
     Dates: start: 20111212, end: 20121121
  3. DIGOXIN [Concomitant]
     Indication: PULMONARY ARTERIAL HYPERTENSION
     Dosage: 125 MG, UNK
     Route: 048
  4. SPIRONOLACTONE [Concomitant]
     Indication: PULMONARY ARTERIAL HYPERTENSION
     Dosage: 25 MG, UNK
     Route: 048
  5. FUROSEMIDE [Concomitant]
     Indication: PULMONARY ARTERIAL HYPERTENSION
     Dosage: 20 MG, UNK
     Route: 048
  6. OXYGEN [Concomitant]
     Indication: PULMONARY ARTERIAL HYPERTENSION
     Dosage: 4 L, UNK

REACTIONS (1)
  - Pulmonary arterial hypertension [Recovered/Resolved]
